FAERS Safety Report 9362528 (Version 1)
Quarter: 2013Q2

REPORT INFORMATION
  Report Type: Spontaneous
  Country: US (occurrence: US)
  Receive Date: 20130622
  Receipt Date: 20130622
  Transmission Date: 20140414
  Serious: No
  Sender: FDA-Public Use
  Company Number: US-US-EMD SERONO, INC.-7039109

PATIENT
  Age: 56 Year
  Sex: Female

DRUGS (1)
  1. REBIF [Suspect]
     Indication: PRODUCT USED FOR UNKNOWN INDICATION
     Route: 058
     Dates: start: 20091201, end: 201107

REACTIONS (5)
  - Angioedema [Recovered/Resolved]
  - Gait disturbance [Not Recovered/Not Resolved]
  - Vitamin D decreased [Recovered/Resolved]
  - Gait disturbance [Not Recovered/Not Resolved]
  - Urticaria [Unknown]
